FAERS Safety Report 25741573 (Version 1)
Quarter: 2025Q3

REPORT INFORMATION
  Report Type: Spontaneous
  Country: US (occurrence: US)
  Receive Date: 20250829
  Receipt Date: 20250829
  Transmission Date: 20251021
  Serious: Yes (Death, Other)
  Sender: ACCORD
  Company Number: US-Accord-500953

PATIENT
  Age: 29 Year
  Sex: Female

DRUGS (17)
  1. AZACITIDINE [Suspect]
     Active Substance: AZACITIDINE
     Indication: Acute promyelocytic leukaemia
     Route: 042
  2. VENETOCLAX [Suspect]
     Active Substance: VENETOCLAX
     Indication: Acute promyelocytic leukaemia
     Route: 048
  3. ACYCLOVIR [Concomitant]
     Active Substance: ACYCLOVIR
     Dosage: 400 MG,?2X/DAY PO
     Route: 048
  4. CEFEPIME [Concomitant]
     Active Substance: CEFEPIME HYDROCHLORIDE
  5. FOLATE SODIUM [Concomitant]
     Active Substance: FOLATE SODIUM
     Indication: Vitamin supplementation
     Route: 048
  6. EPOETIN ALFA [Concomitant]
     Active Substance: ERYTHROPOIETIN
     Dosage: 20 000 U/DAY
     Route: 058
  7. IRON SUCROSE [Concomitant]
     Active Substance: IRON SUCROSE
     Indication: Iron deficiency anaemia
     Route: 042
  8. LEUPROLIDE [Concomitant]
     Active Substance: LEUPROLIDE
     Dosage: 3.75 MG ONCE?PER MONTH INTRADERMAL
     Route: 023
  9. LEVOFLOXACIN [Concomitant]
     Active Substance: LEVOFLOXACIN
     Route: 048
  10. METRONIDAZOLE [Concomitant]
     Active Substance: METRONIDAZOLE
  11. POSACONAZOLE [Concomitant]
     Active Substance: POSACONAZOLE
     Indication: Infection prophylaxis
     Route: 048
  12. ROMIPLOSTIM [Concomitant]
     Active Substance: ROMIPLOSTIM
  13. TRANEXAMIC ACID [Concomitant]
     Active Substance: TRANEXAMIC ACID
     Indication: Heavy menstrual bleeding
     Dosage: 1000 MG 3X/?DAY PO
     Route: 048
  14. VANCOMYCIN [Concomitant]
     Active Substance: VANCOMYCIN
  15. VITAMIN B12 [Concomitant]
     Active Substance: CYANOCOBALAMIN
     Dosage: SUBLINGUAL
     Route: 060
  16. VORICONAZOLE [Concomitant]
     Active Substance: VORICONAZOLE
  17. AZACITIDINE [Suspect]
     Active Substance: AZACITIDINE
     Indication: Acute promyelocytic leukaemia

REACTIONS (1)
  - Anaemia [Fatal]
